FAERS Safety Report 8622746-1 (Version None)
Quarter: 2012Q3

REPORT INFORMATION
  Report Type: 
  Country: None (occurrence: None)
  Receive Date: 20120827
  Receipt Date: 20120821
  Transmission Date: 20120928
  Serious: Yes (Hospitalization)
  Sender: FDA-Public Use
  Company Number: BR-009507513-1208BRA009014

PATIENT

DRUGS (11)
  1. RIBAVIRIN [Suspect]
     Dosage: UNK, BID
     Route: 048
     Dates: start: 20120401, end: 20120618
  2. VICTRELIS [Suspect]
     Dosage: UNK, TID
     Route: 048
     Dates: start: 20120401, end: 20120618
  3. COUMADIN [Concomitant]
     Indication: ANTIPLATELET THERAPY
     Dosage: UNK
     Dates: end: 20050101
  4. COUMADIN [Concomitant]
     Dosage: UNK
     Dates: start: 20120101
  5. RIBAVIRIN [Suspect]
     Indication: HEPATITIS C
     Dosage: UNK
     Route: 048
     Dates: start: 20050101, end: 20050101
  6. PEGASYS [Concomitant]
     Indication: HEPATITIS C
     Dosage: UNK
     Route: 058
     Dates: start: 20050101, end: 20050101
  7. VICTRELIS [Suspect]
     Indication: HEPATITIS C
     Dosage: 800 MG, TID
     Route: 048
     Dates: start: 20120118, end: 20120401
  8. LANSOPRAZOLE [Concomitant]
     Indication: GASTRIC DISORDER
     Dosage: UNK
     Route: 048
     Dates: start: 20120101
  9. PEGASYS [Concomitant]
     Dosage: UNK
     Route: 058
     Dates: start: 20111201, end: 20120401
  10. RIBAVIRIN [Suspect]
     Dosage: UNK
     Route: 048
     Dates: start: 20111201, end: 20120401
  11. PEGASYS [Concomitant]
     Dosage: UNK, BIW
     Route: 058
     Dates: start: 20120401, end: 20120618

REACTIONS (14)
  - ALOPECIA [None]
  - VARICOSE VEIN RUPTURED [None]
  - DRUG INEFFECTIVE [None]
  - HYPOAESTHESIA [None]
  - VIRAL LOAD INCREASED [None]
  - SENSITIVITY OF TEETH [None]
  - FLUID RETENTION [None]
  - PYREXIA [None]
  - GYNAECOMASTIA [None]
  - BREAST PAIN [None]
  - OEDEMA PERIPHERAL [None]
  - SWELLING [None]
  - OVERDOSE [None]
  - MALAISE [None]
